FAERS Safety Report 5525123-5 (Version None)
Quarter: 2007Q4

REPORT INFORMATION
  Report Type: 
  Country: None (occurrence: None)
  Receive Date: 20071119
  Receipt Date: 20071119
  Transmission Date: 20080405
  Serious: No
  Sender: FDA-Public Use
  Company Number: None

PATIENT
  Age: 45 Year
  Sex: Male
  Weight: 90.7194 kg

DRUGS (1)
  1. OXCARBAZEPINE [Suspect]
     Dosage: 600 MG BID HS PO
     Route: 048

REACTIONS (1)
  - HYPONATRAEMIA [None]
